FAERS Safety Report 7518360-1 (Version None)
Quarter: 2011Q2

REPORT INFORMATION
  Report Type: 
  Country: None (occurrence: None)
  Receive Date: 20110602
  Receipt Date: 20081108
  Transmission Date: 20111010
  Serious: Yes (Other)
  Sender: FDA-Public Use
  Company Number: US-BAYER-200838932NA

PATIENT
  Age: 82 Year
  Sex: Female
  Weight: 45 kg

DRUGS (10)
  1. COUMADIN [Concomitant]
     Route: 048
  2. HEPARIN [Concomitant]
     Dosage: 20000 U, UNK
     Route: 042
     Dates: start: 20040610, end: 20040610
  3. MAVIK [Concomitant]
     Dosage: 2 MG, QD
     Route: 048
  4. NIPRIDE [Concomitant]
     Dosage: 64 MG/KG/MINUTE
     Route: 042
     Dates: start: 20040610, end: 20040610
  5. TRASYLOL [Suspect]
     Indication: HIGH FREQUENCY ABLATION
     Dosage: CONTINUOUS INFUSION OF 25 ML/HOUR
     Route: 042
     Dates: start: 20040610, end: 20040610
  6. SOTALOL HCL [Concomitant]
     Dosage: 80 MG, UNK
     Route: 048
  7. DIOVAN [Concomitant]
     Dosage: 40 MG, BID
     Route: 048
  8. TRASYLOL [Suspect]
     Indication: MITRAL VALVE REPAIR
     Dosage: 100 ML, ONCE, LOADING DOSE
     Route: 042
     Dates: start: 20040610, end: 20040610
  9. RED BLOOD CELLS [Concomitant]
     Dosage: 2 U, UNK
     Route: 042
     Dates: start: 20040610, end: 20040610
  10. LYMPHAZURIN [Concomitant]
     Dosage: 1% IN 5 ML X 2
     Route: 042
     Dates: start: 20040610, end: 20040610

REACTIONS (10)
  - RENAL FAILURE [None]
  - EMOTIONAL DISTRESS [None]
  - ANXIETY [None]
  - FEAR [None]
  - INJURY [None]
  - PAIN [None]
  - STRESS [None]
  - UNEVALUABLE EVENT [None]
  - ANHEDONIA [None]
  - MULTI-ORGAN FAILURE [None]
